FAERS Safety Report 7107534-X (Version None)
Quarter: 2010Q4

REPORT INFORMATION
  Report Type: 
  Country: None (occurrence: None)
  Receive Date: 20101117
  Receipt Date: 20101105
  Transmission Date: 20110411
  Serious: Yes (Other)
  Sender: FDA-Public Use
  Company Number: ES-ELI_LILLY_AND_COMPANY-ES201011001832

PATIENT
  Age: 38 Year
  Sex: Male

DRUGS (2)
  1. HUMALOG MIX 75/25 [Suspect]
     Dosage: 36 IU, EACH MORNING
     Route: 058
     Dates: start: 20101013, end: 20101027
  2. HUMALOG MIX 75/25 [Suspect]
     Dosage: 14 IU, OTHER
     Route: 058
     Dates: start: 20101013, end: 20101027

REACTIONS (2)
  - EYELID PTOSIS [None]
  - HYPOGLYCAEMIA [None]
